FAERS Safety Report 8585850-2 (Version None)
Quarter: 2012Q3

REPORT INFORMATION
  Report Type: 
  Country: None (occurrence: None)
  Receive Date: 20120810
  Receipt Date: 20120808
  Transmission Date: 20120928
  Serious: Yes (Other)
  Sender: FDA-Public Use
  Company Number: AU-PFIZER INC-2012192506

PATIENT
  Age: 74 Year
  Sex: Female

DRUGS (3)
  1. ZOLOFT [Suspect]
     Dosage: 125 MG, UNK
  2. ZOLOFT [Suspect]
     Indication: DEPRESSED MOOD
     Dosage: 50 MG, UNK
  3. MODURETIC 5-50 [Concomitant]
     Indication: MENIERE'S DISEASE
     Dosage: 1 DF, 1X/DAY

REACTIONS (5)
  - DIZZINESS [None]
  - DISTURBANCE IN ATTENTION [None]
  - OBSESSIVE-COMPULSIVE DISORDER [None]
  - NEGATIVE THOUGHTS [None]
  - SOMNOLENCE [None]
